FAERS Safety Report 8490161-X (Version None)
Quarter: 2012Q3

REPORT INFORMATION
  Report Type: 
  Country: None (occurrence: None)
  Receive Date: 20120705
  Receipt Date: 20120625
  Transmission Date: 20120928
  Serious: Yes (Disabling, Other)
  Sender: FDA-Public Use
  Company Number: US-SANOFI-AVENTIS-2012SA045467

PATIENT
  Age: 65 Year
  Sex: Female

DRUGS (2)
  1. GLUCOTROL [Concomitant]
  2. LANTUS [Suspect]
     Indication: TYPE 2 DIABETES MELLITUS
     Dosage: DOSE:30 UNIT(S)
     Route: 058
     Dates: start: 20070101

REACTIONS (8)
  - INJECTION SITE NODULE [None]
  - MUSCLE SPASMS [None]
  - FIBROMYALGIA [None]
  - INJECTION SITE HAEMATOMA [None]
  - INJECTION SITE HAEMORRHAGE [None]
  - INJECTION SITE REACTION [None]
  - INJECTION SITE PAIN [None]
  - OEDEMA PERIPHERAL [None]
